FAERS Safety Report 23526265 (Version 1)
Quarter: 2024Q1

REPORT INFORMATION
  Report Type: Spontaneous
  Country: PL (occurrence: PL)
  Receive Date: 20240215
  Receipt Date: 20240215
  Transmission Date: 20240410
  Serious: Yes (Other)
  Sender: FDA-Public Use
  Company Number: None

PATIENT
  Age: 60 Year
  Sex: Male
  Weight: 98 kg

DRUGS (7)
  1. HUMIRA [Suspect]
     Active Substance: ADALIMUMAB
     Indication: Product used for unknown indication
     Route: 058
     Dates: start: 20170622
  2. INDAPAMIDE [Concomitant]
     Active Substance: INDAPAMIDE
     Indication: Essential hypertension
     Route: 048
  3. DIH [Concomitant]
     Indication: Peripheral venous disease
     Dosage: DOSE: 1000 UNITS
     Route: 048
  4. NEBIVOLOL HYDROCHLORIDE [Concomitant]
     Active Substance: NEBIVOLOL HYDROCHLORIDE
     Indication: Essential hypertension
     Route: 048
  5. FOLIC ACID [Concomitant]
     Active Substance: FOLIC ACID
     Indication: Ankylosing spondylitis
     Route: 048
  6. METHOTREXATE [Concomitant]
     Active Substance: METHOTREXATE
     Indication: Ankylosing spondylitis
     Route: 048
  7. IMRALDI [Suspect]
     Active Substance: ADALIMUMAB
     Indication: Ankylosing spondylitis
     Route: 058
     Dates: start: 20190521, end: 20190702

REACTIONS (7)
  - Inflammatory marker increased [Recovering/Resolving]
  - Pain in extremity [Recovering/Resolving]
  - Spinal pain [Recovering/Resolving]
  - Joint range of motion decreased [Recovering/Resolving]
  - Drug ineffective [Recovering/Resolving]
  - Oedema peripheral [Recovering/Resolving]
  - Back pain [Recovering/Resolving]

NARRATIVE: CASE EVENT DATE: 20190716
